FAERS Safety Report 10675175 (Version 1)
Quarter: 2014Q4

REPORT INFORMATION
  Report Type: Spontaneous
  Country: BR (occurrence: BR)
  Receive Date: 20141224
  Receipt Date: 20141224
  Transmission Date: 20150529
  Serious: Yes (Other)
  Sender: FDA-Public Use
  Company Number: BR-GLAXOSMITHKLINE-BR2014GSK040129

PATIENT
  Age: 16 Year
  Sex: Female
  Weight: 50 kg

DRUGS (1)
  1. VALTREX [Suspect]
     Active Substance: VALACYCLOVIR HYDROCHLORIDE
     Indication: HERPES VIRUS INFECTION
     Dosage: 1 UNK, BID
     Route: 048
     Dates: start: 20141218, end: 20141219

REACTIONS (6)
  - Haemorrhage [Unknown]
  - Lip blister [Not Recovered/Not Resolved]
  - Wound secretion [Unknown]
  - Lip oedema [Not Recovered/Not Resolved]
  - Skin exfoliation [Unknown]
  - Lip injury [Not Recovered/Not Resolved]

NARRATIVE: CASE EVENT DATE: 20141219
